FAERS Safety Report 4855514-7 (Version None)
Quarter: 2005Q4

REPORT INFORMATION
  Report Type: 
  Country: None (occurrence: None)
  Receive Date: 20051216
  Receipt Date: 20051205
  Transmission Date: 20060501
  Serious: Yes (Other)
  Sender: FDA-Public Use
  Company Number: CA-JNJFOC-20051201405

PATIENT
  Sex: Female
  Weight: 82.56 kg

DRUGS (2)
  1. REMICADE [Suspect]
     Route: 042
  2. REMICADE [Suspect]
     Indication: RHEUMATOID ARTHRITIS
     Route: 042

REACTIONS (4)
  - COUGH [None]
  - OEDEMA PERIPHERAL [None]
  - SARCOIDOSIS [None]
  - TACHYCARDIA [None]
